FAERS Safety Report 4542683-1 (Version None)
Quarter: 2004Q4

REPORT INFORMATION
  Report Type: 
  Country: None (occurrence: None)
  Receive Date: 20041230
  Receipt Date: 20041117
  Transmission Date: 20050328
  Serious: Yes (Death, Other)
  Sender: FDA-Public Use
  Company Number: US-MERCK-0411USA02868

PATIENT
  Age: 72 Year
  Sex: Female

DRUGS (2)
  1. VIOXX [Suspect]
     Route: 048
     Dates: start: 20020101
  2. NORVASC [Concomitant]
     Route: 065

REACTIONS (11)
  - ARTHRITIS [None]
  - CARDIAC VALVE DISEASE [None]
  - CARDIO-RESPIRATORY ARREST [None]
  - COMA [None]
  - CORONARY ARTERY DISEASE [None]
  - CYANOSIS [None]
  - DYSPNOEA [None]
  - FEELING COLD [None]
  - HYPERTENSION [None]
  - SUDDEN DEATH [None]
  - THERAPY NON-RESPONDER [None]
